FAERS Safety Report 14913544 (Version 1)
Quarter: 2018Q2

REPORT INFORMATION
  Report Type: Spontaneous
  Country: US (occurrence: US)
  Receive Date: 20180501
  Receipt Date: 20180501
  Transmission Date: 20180711
  Serious: Yes (Hospitalization)
  Sender: FDA-Public Use
  Company Number: None

PATIENT
  Age: 9 Year
  Sex: Female
  Weight: 23 kg

DRUGS (6)
  1. DAUNORUBICIN [Suspect]
     Active Substance: DAUNORUBICIN
     Dates: end: 20180411
  2. METHOTREXATE. [Suspect]
     Active Substance: METHOTREXATE
     Dates: end: 20180411
  3. ONCASPAR [Suspect]
     Active Substance: PEGASPARGASE
     Dates: end: 20180407
  4. DEXAMETHASONE. [Suspect]
     Active Substance: DEXAMETHASONE
     Dates: end: 20180414
  5. VINCRISTINE SULFATE. [Suspect]
     Active Substance: VINCRISTINE SULFATE
     Dates: end: 20180411
  6. CYTARABINE. [Suspect]
     Active Substance: CYTARABINE
     Dates: end: 20180413

REACTIONS (7)
  - Renal impairment [None]
  - Cardiac dysfunction [None]
  - Klebsiella test positive [None]
  - Encephalopathy [None]
  - Hypotension [None]
  - Pleocytosis [None]
  - Blood culture positive [None]

NARRATIVE: CASE EVENT DATE: 20180415
